FAERS Safety Report 25988423 (Version 1)
Quarter: 2025Q4

REPORT INFORMATION
  Report Type: Spontaneous
  Country: US (occurrence: US)
  Receive Date: 20251103
  Receipt Date: 20251103
  Transmission Date: 20260118
  Serious: Yes (Other)
  Sender: COOPERSURGICAL
  Company Number: US-COOPERSURGICAL, INC.-2025CPS007586

PATIENT
  Age: 20 Year
  Sex: Female
  Weight: 72.562 kg

DRUGS (1)
  1. PARAGARD T 380A [Suspect]
     Active Substance: COPPER
     Indication: Contraception
     Dosage: UNK
     Route: 015
     Dates: start: 20070101, end: 20121228

REACTIONS (15)
  - Surgery [Recovered/Resolved]
  - Device breakage [Recovered/Resolved]
  - Foreign body in reproductive tract [Recovered/Resolved]
  - Complication of device removal [Recovered/Resolved]
  - Embedded device [Recovered/Resolved]
  - Procedural pain [Recovered/Resolved]
  - Pain [Not Recovered/Not Resolved]
  - Pelvic pain [Not Recovered/Not Resolved]
  - Dyspareunia [Recovered/Resolved]
  - Discomfort [Unknown]
  - Vaginal odour [Unknown]
  - Heavy menstrual bleeding [Recovered/Resolved]
  - Dysmenorrhoea [Recovered/Resolved]
  - Intermenstrual bleeding [Recovered/Resolved]
  - Device dislocation [Recovered/Resolved]

NARRATIVE: CASE EVENT DATE: 20070101
